FAERS Safety Report 7485777-3 (Version None)
Quarter: 2011Q2

REPORT INFORMATION
  Report Type: 
  Country: None (occurrence: None)
  Receive Date: 20110517
  Receipt Date: 20110513
  Transmission Date: 20111010
  Serious: Yes (Hospitalization, Other)
  Sender: FDA-Public Use
  Company Number: US-MERCK-1102USA03288

PATIENT
  Sex: Female

DRUGS (24)
  1. MECLIZINE [Suspect]
     Route: 065
  2. NASONEX [Suspect]
     Route: 055
  3. ADVAIR DISKUS 100/50 [Suspect]
     Route: 065
  4. OMEGA-3 MARINE TRIGLYCERIDES [Suspect]
     Route: 065
  5. PROVENTIL [Suspect]
     Route: 065
  6. VERPAMIL HCL [Suspect]
     Route: 065
  7. PREDNISONE [Suspect]
     Route: 065
  8. FOLIC ACID [Suspect]
     Route: 065
  9. LORATADINE [Suspect]
     Route: 065
  10. VICODIN [Suspect]
     Route: 065
  11. HUMIRA [Suspect]
     Route: 065
  12. KINERET [Suspect]
     Route: 065
  13. SINGULAIR [Suspect]
     Route: 048
  14. GASTROINTESTINAL PREPARATIONS (UNSPECIFIED) [Suspect]
     Route: 065
  15. CINNAMON [Suspect]
     Route: 065
  16. AMLODIPINE [Suspect]
     Route: 065
  17. LYRICA [Suspect]
     Route: 065
  18. VITAMIN B (UNSPECIFIED) [Suspect]
     Route: 065
  19. POTASSIUM CHLORIDE [Suspect]
     Route: 065
  20. VITAMIN D (UNSPECIFIED) [Suspect]
     Route: 065
  21. REMICADE [Suspect]
     Route: 065
  22. METFORMIN HCL [Suspect]
     Route: 065
  23. HYDROXYCHLOROQUINE SULFATE [Suspect]
     Route: 065
  24. SULFASALAZINE [Suspect]
     Route: 065

REACTIONS (16)
  - CHRONIC OBSTRUCTIVE PULMONARY DISEASE [None]
  - ASTHMA [None]
  - RHEUMATOID ARTHRITIS [None]
  - MOVEMENT DISORDER [None]
  - FALL [None]
  - CEREBROVASCULAR ACCIDENT [None]
  - ADVERSE EVENT [None]
  - LIVER DISORDER [None]
  - CERVICAL VERTEBRAL FRACTURE [None]
  - ERYTHEMA [None]
  - MENTAL DISORDER [None]
  - OSTEOARTHRITIS [None]
  - EMPHYSEMA [None]
  - BLOOD POTASSIUM DECREASED [None]
  - ROAD TRAFFIC ACCIDENT [None]
  - VIITH NERVE PARALYSIS [None]
